FAERS Safety Report 24232822 (Version 3)
Quarter: 2024Q4

REPORT INFORMATION
  Report Type: Spontaneous
  Country: US (occurrence: US)
  Receive Date: 20240821
  Receipt Date: 20241218
  Transmission Date: 20250115
  Serious: No
  Sender: RISING PHARMACEUTICALS
  Company Number: US-RISINGPHARMA-US-2024RISSPO00284

PATIENT
  Age: 57 Year
  Sex: Female
  Weight: 200 kg

DRUGS (1)
  1. GABAPENTIN [Suspect]
     Active Substance: GABAPENTIN
     Indication: Product used for unknown indication
     Route: 065

REACTIONS (5)
  - Malaise [Unknown]
  - Eructation [Unknown]
  - Nausea [Unknown]
  - Product odour abnormal [Unknown]
  - Product after taste [Unknown]
